FAERS Safety Report 4630366-9 (Version None)
Quarter: 2005Q2

REPORT INFORMATION
  Report Type: 
  Country: None (occurrence: None)
  Receive Date: 20050408
  Receipt Date: 20050331
  Transmission Date: 20051028
  Serious: Yes (Hospitalization, Other)
  Sender: FDA-Public Use
  Company Number: PHHO2005US05361

PATIENT
  Age: 72 Year
  Sex: Female
  Weight: 59 kg

DRUGS (3)
  1. ZOLEDRONIC ACID VS PLACEBO [Suspect]
     Indication: OSTEOPOROTIC FRACTURE
     Dosage: DOUBLE BLIND
     Route: 042
     Dates: start: 20040804
  2. CALCIUM CARBONATE [Concomitant]
     Indication: OSTEOPOROTIC FRACTURE
  3. VITAMIN D [Concomitant]
     Indication: OSTEOPOROTIC FRACTURE

REACTIONS (9)
  - MUSCLE ABSCESS [None]
  - PAIN [None]
  - POSTOPERATIVE INFECTION [None]
  - PYREXIA [None]
  - RIB FRACTURE [None]
  - SEPSIS [None]
  - STREPTOCOCCAL ABSCESS [None]
  - SWELLING [None]
  - TOOTH EXTRACTION [None]
